FAERS Safety Report 10675747 (Version 1)
Quarter: 2014Q4

REPORT INFORMATION
  Report Type: Spontaneous
  Country: US (occurrence: US)
  Receive Date: 20141224
  Receipt Date: 20141224
  Transmission Date: 20150529
  Serious: No
  Sender: FDA-Public Use
  Company Number: US-ACORDA-ACO_106979_2014

PATIENT
  Sex: Female

DRUGS (2)
  1. GABAPENTIN. [Suspect]
     Active Substance: GABAPENTIN
     Indication: PRODUCT USED FOR UNKNOWN INDICATION
     Route: 065
  2. TIZANIDINE (TIZANIDINE) [Suspect]
     Active Substance: TIZANIDINE
     Indication: PRODUCT USED FOR UNKNOWN INDICATION
     Route: 065

REACTIONS (13)
  - Peripheral swelling [Unknown]
  - Gait disturbance [Unknown]
  - Sciatica [Recovering/Resolving]
  - Nystagmus [Unknown]
  - Peroneal nerve palsy [Unknown]
  - Extensor plantar response [Unknown]
  - Poor quality sleep [Unknown]
  - Walking aid user [Unknown]
  - Hypertonia [Unknown]
  - Back pain [Recovering/Resolving]
  - Hyperreflexia [Unknown]
  - Somnolence [Unknown]
  - Muscle spasms [Recovering/Resolving]
